FAERS Safety Report 6808355-5 (Version None)
Quarter: 2010Q2

REPORT INFORMATION
  Report Type: 
  Country: None (occurrence: None)
  Receive Date: 20100629
  Receipt Date: 20090524
  Transmission Date: 20101027
  Serious: Yes (Other)
  Sender: FDA-Public Use
  Company Number: US-PFIZER INC-2009196323

PATIENT
  Sex: Female
  Weight: 121 kg

DRUGS (10)
  1. TIKOSYN [Suspect]
     Indication: ATRIAL FIBRILLATION
     Dosage: 250 UG, 2X/DAY
     Route: 048
     Dates: start: 20090404, end: 20090426
  2. ACETYLSALICYLIC ACID [Concomitant]
     Dosage: UNK
  3. COLACE [Concomitant]
     Dosage: 50 MG, UNK
  4. NEXIUM [Concomitant]
     Dosage: 20 MG, UNK
  5. LASIX [Concomitant]
     Dosage: UNK
  6. GABAPENTIN [Concomitant]
     Dosage: UNK
  7. LISINOPRIL [Concomitant]
     Dosage: UNK
  8. MULTI-VITAMINS [Concomitant]
  9. DETROL [Concomitant]
  10. WARFARIN [Concomitant]

REACTIONS (4)
  - ASTHENIA [None]
  - CHEST DISCOMFORT [None]
  - FATIGUE [None]
  - HEADACHE [None]
